FAERS Safety Report 10644984 (Version 1)
Quarter: 2014Q4

REPORT INFORMATION
  Report Type: Spontaneous
  Country: US (occurrence: None)
  Receive Date: 20141210
  Receipt Date: 20141210
  Transmission Date: 20150529
  Serious: No
  Sender: FDA-Public Use
  Company Number: None

PATIENT
  Age: 64 Year
  Sex: Male

DRUGS (1)
  1. ZYTIGA [Suspect]
     Active Substance: ABIRATERONE ACETATE
     Indication: PROSTATE CANCER
     Dosage: STRENGTH: 250MG, DOSE FORM: ORAL, ROUTE: ORAL 047, FREQUENCY: 4 TABLETS DAILY
     Route: 048
     Dates: start: 20141118

REACTIONS (2)
  - Paraesthesia [None]
  - Palmar erythema [None]

NARRATIVE: CASE EVENT DATE: 20141208
